FAERS Safety Report 8465320-2 (Version None)
Quarter: 2012Q2

REPORT INFORMATION
  Report Type: 
  Country: None (occurrence: None)
  Receive Date: 20120626
  Receipt Date: 20120618
  Transmission Date: 20120825
  Serious: Yes (Hospitalization)
  Sender: FDA-Public Use
  Company Number: US-BAYER-2012-061817

PATIENT
  Age: 23 Year
  Sex: Female

DRUGS (17)
  1. NEURONTIN [Concomitant]
     Dosage: 300 MG, DAILY
     Route: 048
  2. NEURONTIN [Concomitant]
     Dosage: 300MG CAPSULE; TAKE ONE CAPSULE THREE TIMES DAILY
  3. VICODIN [Concomitant]
     Indication: PAIN
     Dosage: 5/500MG TABLET; 1 OR 2 TABLETS EVERY SIX HOURS PRN
     Route: 048
  4. PERCOCET [Concomitant]
     Indication: BACK PAIN
     Dosage: 5-325MG TABLET; 1 OR 2 TABLETS EVERY SIX HOURS, PRN
     Route: 048
  5. MOBIC [Concomitant]
     Indication: FIBROMYALGIA
     Dosage: 7.5 MG, BID
     Route: 048
  6. NEXIUM [Concomitant]
     Dosage: 40 MG, DAILY
     Route: 048
  7. SAVELLA [Concomitant]
     Indication: FIBROMYALGIA
     Dosage: 50 MG, BID
     Route: 048
  8. CONCERTA [Concomitant]
     Indication: ATTENTION DEFICIT/HYPERACTIVITY DISORDER
     Dosage: 54 MG, QD
     Route: 048
  9. ZOFRAN [Concomitant]
     Indication: CONSTIPATION
  10. SAVELLA [Concomitant]
     Dosage: 50MG DAILY
  11. TRAMADOL HCL [Concomitant]
     Dosage: 50MG TABLET; TAKE ONE TABLET TWICE DAILY
  12. COLACE [Concomitant]
     Indication: CONSTIPATION
     Dosage: 100 MG, TWICE DAILY AS NEEDED
  13. DROSPIRENONE AND ETHINYL ESTRADIOL [Suspect]
  14. TRAMADOL HCL [Concomitant]
     Dosage: 50 MG, DAILY PRN
     Route: 048
  15. YAZ [Suspect]
  16. CHERATUSSIN AC [Concomitant]
     Dosage: 10 ML, HS
     Route: 048
  17. FLEXERIL [Concomitant]
     Indication: MUSCLE SPASMS
     Dosage: 10 MG, EVERY SIX HOURS PRN
     Route: 048

REACTIONS (1)
  - DEEP VEIN THROMBOSIS [None]
